FAERS Safety Report 15250026 (Version 1)
Quarter: 2018Q3

REPORT INFORMATION
  Report Type: Spontaneous
  Country: US (occurrence: US)
  Receive Date: 20180716
  Receipt Date: 20180716
  Transmission Date: 20181010
  Serious: Yes (Hospitalization)
  Sender: FDA-Public Use
  Company Number: None

PATIENT
  Sex: Female

DRUGS (5)
  1. BYSTOLIC 2.5MG [Concomitant]
  2. FUROSEMIDE 20MG [Concomitant]
     Active Substance: FUROSEMIDE
  3. ASPIRIN 81MG EC [Concomitant]
  4. EDARBYCLOR 40/12.5MG [Concomitant]
  5. STELARA [Suspect]
     Active Substance: USTEKINUMAB
     Indication: PSORIASIS
     Dosage: ?          OTHER FREQUENCY:EVERY 12 WEEKS;?
     Route: 058
     Dates: start: 20170826

REACTIONS (1)
  - Asthma [None]
